FAERS Safety Report 13192450 (Version 1)
Quarter: 2017Q1

REPORT INFORMATION
  Report Type: Spontaneous
  Country: US (occurrence: US)
  Receive Date: 20170207
  Receipt Date: 20170207
  Transmission Date: 20170428
  Serious: No
  Sender: FDA-Public Use
  Company Number: US-BIOTEST-T 33/16

PATIENT
  Sex: Female
  Weight: 109.7 kg

DRUGS (2)
  1. BIVIGAM [Suspect]
     Active Substance: HUMAN IMMUNOGLOBULIN G
     Indication: IMMUNODEFICIENCY COMMON VARIABLE
     Route: 041
  2. OXYCODONE [Concomitant]
     Active Substance: OXYCODONE
     Indication: MIGRAINE
     Dosage: AS NEEDED

REACTIONS (3)
  - Headache [Recovered/Resolved]
  - Chills [Recovered/Resolved]
  - Pyrexia [Recovered/Resolved]

NARRATIVE: CASE EVENT DATE: 20160103
